FAERS Safety Report 17414596 (Version 3)
Quarter: 2020Q1

REPORT INFORMATION
  Report Type: Spontaneous
  Country: DE (occurrence: DE)
  Receive Date: 20200213
  Receipt Date: 20200323
  Transmission Date: 20200409
  Serious: Yes (Other)
  Sender: FDA-Public Use
  Company Number: DE-MYLANLABS-2020M1015562

PATIENT
  Age: 83 Year
  Sex: Male
  Weight: 88 kg

DRUGS (17)
  1. ASPIRIN PROTECT [Concomitant]
     Active Substance: ASPIRIN
     Dosage: 100 MILLIGRAM, QD, 0-1-0
  2. EZETIMIBE. [Suspect]
     Active Substance: EZETIMIBE
     Indication: LOW DENSITY LIPOPROTEIN INCREASED
     Dosage: UNK
     Route: 048
     Dates: start: 20190930, end: 20191029
  3. CRESTOR [Suspect]
     Active Substance: ROSUVASTATIN CALCIUM
     Indication: LOW DENSITY LIPOPROTEIN INCREASED
     Dosage: 20 MILLIGRAM, QD, 0-0-0-1
     Route: 048
     Dates: start: 2009
  4. VITAMIN D3 [Concomitant]
     Active Substance: CHOLECALCIFEROL
     Dosage: 1000 INTERNATIONAL UNIT, QD, 0-0-0-1
  5. EZETIMIBE. [Suspect]
     Active Substance: EZETIMIBE
     Dosage: UNK
     Route: 048
     Dates: start: 201910
  6. DICLOFENAC                         /00372302/ [Concomitant]
     Active Substance: DICLOFENAC
     Dosage: UNK, 2X TAEGLICH AUF DER STIRN
  7. BETADERMIC [Concomitant]
     Dosage: UNK, 1X TAEGLICH ANWENDUNG AN DEN ELLENBOGEN, PO, FUESSE
  8. HYDROCHLOROTHIAZID [Concomitant]
     Active Substance: HYDROCHLOROTHIAZIDE
     Dosage: 12.5 MILLIGRAM, QD
  9. OLMESARTAN                         /01635402/ [Concomitant]
     Active Substance: OLMESARTAN MEDOXOMIL
     Dosage: 20 MILLIGRAM, QD, 1-0-0
  10. NITROLINGUAL [Concomitant]
     Active Substance: NITROGLYCERIN
     Indication: ANGINA PECTORIS
     Dosage: UNK UNK, PRN
  11. VITAMIN B12 [Concomitant]
     Active Substance: CYANOCOBALAMIN
     Dosage: UNK
  12. VELMETIA [Concomitant]
     Active Substance: METFORMIN\SITAGLIPTIN
     Dosage: 1 DOSAGE FORM, QD, 1-0-0
  13. TADIN                              /01280302/ [Concomitant]
     Dosage: 0.4 MILLIGRAM, QD, 0-1-0
  14. METOPROLOL. [Concomitant]
     Active Substance: METOPROLOL
     Dosage: 95 MILLIGRAM, BID, 1-0-1
  15. ROSUVASTATIN. [Suspect]
     Active Substance: ROSUVASTATIN
     Dosage: UNK
     Route: 048
     Dates: start: 20190930, end: 20191029
  16. ROSUVASTATIN. [Suspect]
     Active Substance: ROSUVASTATIN
     Indication: LOW DENSITY LIPOPROTEIN INCREASED
     Dosage: UNK
     Route: 048
     Dates: start: 2009
  17. VITAMIN B1                         /00056102/ [Concomitant]
     Active Substance: THIAMINE HYDROCHLORIDE
     Dosage: 300 MILLIGRAM, QD, 0-1-0

REACTIONS (28)
  - Micturition urgency [Not Recovered/Not Resolved]
  - Urine output decreased [Not Recovered/Not Resolved]
  - Muscular weakness [Not Recovered/Not Resolved]
  - Fatigue [Not Recovered/Not Resolved]
  - Dysstasia [Not Recovered/Not Resolved]
  - Chromaturia [Not Recovered/Not Resolved]
  - Abdominal pain [Not Recovered/Not Resolved]
  - Decreased appetite [Not Recovered/Not Resolved]
  - Erectile dysfunction [Not Recovered/Not Resolved]
  - Gait disturbance [Not Recovered/Not Resolved]
  - Adverse reaction [Not Recovered/Not Resolved]
  - Sneezing [Not Recovered/Not Resolved]
  - Pain in extremity [Not Recovered/Not Resolved]
  - Muscle atrophy [Not Recovered/Not Resolved]
  - Skin exfoliation [Not Recovered/Not Resolved]
  - Hypersensitivity [Not Recovered/Not Resolved]
  - Nausea [Not Recovered/Not Resolved]
  - Asthenia [Not Recovered/Not Resolved]
  - Dry mouth [Not Recovered/Not Resolved]
  - Tendon discomfort [Not Recovered/Not Resolved]
  - Weight increased [Not Recovered/Not Resolved]
  - Abdominal distension [Not Recovered/Not Resolved]
  - Pruritus [Not Recovered/Not Resolved]
  - Balance disorder [Not Recovered/Not Resolved]
  - Sleep disorder [Not Recovered/Not Resolved]
  - Burning sensation [Not Recovered/Not Resolved]
  - Peripheral swelling [Not Recovered/Not Resolved]
  - Psoriasis [Not Recovered/Not Resolved]

NARRATIVE: CASE EVENT DATE: 2019
